FAERS Safety Report 4294830-7 (Version None)
Quarter: 2004Q1

REPORT INFORMATION
  Report Type: 
  Country: None (occurrence: None)
  Receive Date: 20040216
  Receipt Date: 20030115
  Transmission Date: 20041129
  Serious: No
  Sender: FDA-Public Use
  Company Number: US-GLAXOSMITHKLINE-A0392749A

PATIENT
  Age: 54 Year
  Sex: Male
  Weight: 124.5 kg

DRUGS (9)
  1. LAMICTAL [Suspect]
     Dosage: 100MG TWICE PER DAY
     Route: 048
  2. LITHIUM CARBONATE [Concomitant]
     Indication: BIPOLAR DISORDER
     Dosage: 5TSP VARIABLE DOSE
     Route: 048
     Dates: start: 19980801
  3. SULINDAC [Concomitant]
     Indication: GOUT
     Dosage: 200MG TWICE PER DAY
     Route: 048
     Dates: start: 20020901
  4. TRAZODONE HCL [Concomitant]
     Route: 048
     Dates: start: 19990101, end: 20021201
  5. LISINOPRIL [Concomitant]
     Indication: HYPERTENSION
     Dosage: 10MG PER DAY
     Route: 048
     Dates: start: 20011001
  6. PROPRANOLOL [Concomitant]
     Indication: TREMOR
     Dosage: 10MG THREE TIMES PER DAY
     Route: 048
     Dates: start: 19980801, end: 20021101
  7. PROBENECID [Concomitant]
     Indication: GOUT
     Dosage: 500MG TWICE PER DAY
     Route: 048
     Dates: start: 20001001
  8. ACIPHEX [Concomitant]
     Route: 048
     Dates: start: 20020901
  9. LOVASTATIN [Concomitant]
     Route: 048
     Dates: start: 20010201

REACTIONS (1)
  - RASH [None]
